FAERS Safety Report 8198158-4 (Version None)
Quarter: 2012Q1

REPORT INFORMATION
  Report Type: 
  Country: None (occurrence: None)
  Receive Date: 20120309
  Receipt Date: 20111130
  Transmission Date: 20120608
  Serious: No
  Sender: FDA-Public Use
  Company Number: US-AMGEN-USASP2011063516

PATIENT
  Sex: Female

DRUGS (2)
  1. PROLIA [Suspect]
     Indication: PRODUCT USED FOR UNKNOWN INDICATION
     Dosage: 60 MG, Q6MO
  2. VITAMIN D [Concomitant]

REACTIONS (3)
  - MYALGIA [None]
  - GASTRIC DISORDER [None]
  - INFLUENZA LIKE ILLNESS [None]
